FAERS Safety Report 7230891-0 (Version None)
Quarter: 2011Q1

REPORT INFORMATION
  Report Type: 
  Country: None (occurrence: None)
  Receive Date: 20110118
  Receipt Date: 20110107
  Transmission Date: 20110831
  Serious: Yes (Hospitalization)
  Sender: FDA-Public Use
  Company Number: US-ROCHE-721936

PATIENT
  Age: 55 Year
  Sex: Male
  Weight: 110 kg

DRUGS (10)
  1. MYCOPHENOLATE MOFETIL [Suspect]
     Route: 048
     Dates: start: 20100803
  2. METOPROLOL [Concomitant]
     Indication: HYPERTENSION
     Dates: start: 20080914
  3. NORVASC [Concomitant]
     Indication: HYPERTENSION
     Dates: start: 20080912
  4. CYCLOSPORINE [Suspect]
     Route: 048
     Dates: start: 20100910
  5. BACTRIM [Concomitant]
     Indication: PROPHYLAXIS
     Dates: start: 20080913
  6. MYCOPHENOLATE MOFETIL [Suspect]
     Indication: IMMUNOSUPPRESSION
     Route: 048
     Dates: start: 20080912
  7. CYCLOSPORINE [Suspect]
     Route: 048
     Dates: start: 20090916, end: 20100816
  8. ACETYLSALICYLIC ACID [Concomitant]
     Indication: PROPHYLAXIS
     Dates: start: 20090815
  9. NEXIUM [Concomitant]
     Dates: start: 20080913
  10. ESOMEPRAZOLE [Concomitant]
     Dates: start: 20080913

REACTIONS (4)
  - KIDNEY TRANSPLANT REJECTION [None]
  - HERPES ZOSTER [None]
  - BLOOD CREATININE INCREASED [None]
  - RENAL TUBULAR NECROSIS [None]
